FAERS Safety Report 9837231 (Version 1)
Quarter: 2013Q4

REPORT INFORMATION
  Report Type: Spontaneous
  Country: US (occurrence: None)
  Receive Date: 20131205
  Receipt Date: 20131205
  Transmission Date: 20140711
  Serious: Yes (Other)
  Sender: FDA-Public Use
  Company Number: 163-POMAL-13101092

PATIENT
  Age: 59 Year
  Sex: Male

DRUGS (3)
  1. POMALYST (POMALIDOMIDE) (4 MILLIGRAM, CAPSULES) [Suspect]
     Indication: PLASMA CELL MYELOMA
     Dosage: TEMPORARILY INTERRUPTED?4 MG, 1 IN 1 D, PO
     Route: 048
     Dates: start: 201310
  2. DEXAMETHASONE (DEXAMETHASONE) [Concomitant]
  3. INHALER (OTHER THERAPEUTIC PRODUCTS) [Concomitant]

REACTIONS (5)
  - Reaction to drug excipients [None]
  - Drug dose omission [None]
  - Epistaxis [None]
  - Dyspnoea [None]
  - Pain [None]
